FAERS Safety Report 8903171 (Version 2)
Quarter: 2012Q4

REPORT INFORMATION
  Report Type: 
  Country: US (occurrence: US)
  Receive Date: 20121113
  Receipt Date: 20121123
  Transmission Date: 20130627
  Serious: Yes (Other)
  Sender: FDA-Public Use
  Company Number: US-PFIZER INC-2012280276

PATIENT
  Age: 74 Year
  Sex: Female

DRUGS (5)
  1. NORVASC [Suspect]
     Indication: BLOOD PRESSURE HIGH
     Dosage: UNK, daily
     Route: 048
  2. SLOW-MAG [Concomitant]
     Dosage: 71.5 mg, daily
  3. METOPROLOL [Concomitant]
     Dosage: 50 mg, 2x/day
  4. SPIRONOLACTONE [Concomitant]
     Dosage: 25 mg, daily
  5. WARFARIN [Concomitant]
     Indication: ANTICOAGULANT THERAPY
     Dosage: UNK, daily

REACTIONS (1)
  - Cardiac disorder [Unknown]
